FAERS Safety Report 15501004 (Version 1)
Quarter: 2018Q4

REPORT INFORMATION
  Report Type: Spontaneous
  Country: US (occurrence: US)
  Receive Date: 20181015
  Receipt Date: 20181015
  Transmission Date: 20190205
  Serious: No
  Sender: FDA-Public Use
  Company Number: US-MYLANLABS-2018M1073783

PATIENT
  Age: 3 Year
  Sex: Female

DRUGS (1)
  1. EPIPEN [Suspect]
     Active Substance: EPINEPHRINE
     Indication: PRODUCT USED FOR UNKNOWN INDICATION
     Dosage: UNK
     Dates: start: 20181003, end: 20181003

REACTIONS (3)
  - Accidental exposure to product by child [Unknown]
  - Injury associated with device [Unknown]
  - Expired product administered [Unknown]

NARRATIVE: CASE EVENT DATE: 20181003
